FAERS Safety Report 9429419 (Version 1)
Quarter: 2013Q3

REPORT INFORMATION
  Report Type: Spontaneous
  Country: US (occurrence: US)
  Receive Date: 20130730
  Receipt Date: 20130730
  Transmission Date: 20140515
  Serious: No
  Sender: FDA-Public Use
  Company Number: US-ABBOTT-13P-163-1058779-00

PATIENT
  Sex: Female
  Weight: 76.27 kg

DRUGS (8)
  1. NIASPAN (COATED) [Suspect]
     Indication: BLOOD CHOLESTEROL INCREASED
     Dates: start: 2010, end: 2011
  2. NIASPAN (COATED) [Suspect]
     Dates: start: 2011
  3. CLARITIN [Concomitant]
     Indication: HYPERSENSITIVITY
  4. OMEPRAZOLE [Concomitant]
     Indication: GASTROOESOPHAGEAL REFLUX DISEASE
  5. RITALIN [Concomitant]
     Indication: SOMNOLENCE
  6. BENADRYL [Concomitant]
     Indication: INSOMNIA
  7. IRON [Concomitant]
     Indication: IRON DEFICIENCY
  8. MULTIVITAMIN [Concomitant]
     Indication: VITAMIN SUPPLEMENTATION

REACTIONS (2)
  - Flushing [Not Recovered/Not Resolved]
  - Erythema [Not Recovered/Not Resolved]
